FAERS Safety Report 4719665-X (Version None)
Quarter: 2005Q3

REPORT INFORMATION
  Report Type: 
  Country: None (occurrence: None)
  Receive Date: 20050721
  Receipt Date: 20040609
  Transmission Date: 20060218
  Serious: No
  Sender: FDA-Public Use
  Company Number: US-GLAXOSMITHKLINE-A0513954A

PATIENT
  Age: 59 Year
  Sex: Female

DRUGS (3)
  1. AVANDIA [Suspect]
     Dosage: 4MG PER DAY
     Route: 048
     Dates: start: 20040607
  2. METFORMIN [Concomitant]
     Dosage: 2TAB TWICE PER DAY
  3. GLYBURIDE [Concomitant]
     Dosage: 1TAB TWICE PER DAY

REACTIONS (1)
  - VERTIGO [None]
